FAERS Safety Report 8101034-6 (Version None)
Quarter: 2012Q1

REPORT INFORMATION
  Report Type: 
  Country: None (occurrence: None)
  Receive Date: 20120131
  Receipt Date: 20120120
  Transmission Date: 20120608
  Serious: Yes (Hospitalization)
  Sender: FDA-Public Use
  Company Number: ES-JNJFOC-20101003029

PATIENT
  Age: 45 Year
  Sex: Male
  Weight: 85 kg

DRUGS (13)
  1. REMICADE [Suspect]
     Route: 042
  2. PREDNISONE TAB [Suspect]
     Dosage: DOSE STARTED AT 60 MG/DAY AND THEN TAPERED
     Route: 048
     Dates: start: 20101013
  3. REMICADE [Suspect]
     Route: 042
  4. PREDNISONE TAB [Suspect]
     Indication: COLITIS ULCERATIVE
     Route: 048
     Dates: start: 20100521
  5. CALCIUM [Concomitant]
     Indication: PROPHYLAXIS
     Route: 048
     Dates: start: 20101013
  6. REMICADE [Suspect]
     Route: 042
     Dates: start: 20100518
  7. METHOTREXATE [Suspect]
     Indication: COLITIS ULCERATIVE
     Route: 030
     Dates: start: 20100902, end: 20101201
  8. CORTICOSTEROIDS [Concomitant]
     Indication: COLITIS ULCERATIVE
     Dosage: DOSE= ^1% MG PER DAY^
     Route: 054
     Dates: start: 20101103
  9. REMICADE [Suspect]
     Indication: COLITIS ULCERATIVE
     Route: 042
     Dates: end: 20100820
  10. PREDNISONE TAB [Suspect]
     Dosage: TAPERED DOSE
     Route: 048
     Dates: end: 20100730
  11. CALCIUM [Concomitant]
     Route: 048
     Dates: start: 20100521, end: 20100730
  12. CALCIUM [Concomitant]
     Indication: COLITIS ULCERATIVE
     Route: 048
     Dates: start: 20100521, end: 20100730
  13. CALCIUM [Concomitant]
     Route: 048
     Dates: start: 20101013

REACTIONS (1)
  - COLITIS ULCERATIVE [None]
